FAERS Safety Report 18637591 (Version 1)
Quarter: 2020Q4

REPORT INFORMATION
  Report Type: Spontaneous
  Country: FR (occurrence: FR)
  Receive Date: 20201218
  Receipt Date: 20201218
  Transmission Date: 20210114
  Serious: Yes (Other)
  Sender: FDA-Public Use
  Company Number: FR-009507513-2012FRA006561

PATIENT
  Age: 82 Year
  Sex: Female

DRUGS (6)
  1. VIRAFERONPEG [Suspect]
     Active Substance: PEGINTERFERON ALFA-2B
     Indication: HEPATITIS C
     Dosage: UNK
     Dates: start: 20030507, end: 20031013
  2. REBETOL [Suspect]
     Active Substance: RIBAVIRIN
     Indication: HEPATITIS C
     Dosage: UNK
     Dates: start: 20030507, end: 20031013
  3. COPEGUS [Concomitant]
     Active Substance: RIBAVIRIN
     Dosage: UNK
     Dates: start: 20070921, end: 200710
  4. SOVALDI [Concomitant]
     Active Substance: SOFOSBUVIR
     Dosage: UNK
     Dates: start: 20150402, end: 20150625
  5. RIBAVIRIN. [Suspect]
     Active Substance: RIBAVIRIN
     Indication: HEPATITIS C
     Dosage: UNK
     Dates: start: 20150402, end: 20150625
  6. PEGASYS [Concomitant]
     Active Substance: PEGINTERFERON ALFA-2A
     Dosage: UNK
     Dates: start: 20070921, end: 200710

REACTIONS (1)
  - Ischaemic cardiomyopathy [Recovering/Resolving]

NARRATIVE: CASE EVENT DATE: 201808
